FAERS Safety Report 22593604 (Version 7)
Quarter: 2024Q2

REPORT INFORMATION
  Report Type: Spontaneous
  Country: JP (occurrence: JP)
  Receive Date: 20230613
  Receipt Date: 20240418
  Transmission Date: 20240716
  Serious: Yes (Hospitalization, Other)
  Sender: FDA-Public Use
  Company Number: JP-BRISTOL-MYERS SQUIBB COMPANY-2023-081625

PATIENT
  Age: 49 Year
  Sex: Female

DRUGS (11)
  1. YERVOY [Suspect]
     Active Substance: IPILIMUMAB
     Indication: Malignant melanoma
     Route: 041
  2. OPDIVO [Suspect]
     Active Substance: NIVOLUMAB
     Indication: Malignant melanoma
     Route: 041
  3. OPDIVO [Suspect]
     Active Substance: NIVOLUMAB
     Route: 041
  4. OPDIVO [Suspect]
     Active Substance: NIVOLUMAB
     Route: 041
  5. OPDIVO [Suspect]
     Active Substance: NIVOLUMAB
     Route: 041
  6. BRAFTOVI [Suspect]
     Active Substance: ENCORAFENIB
     Indication: Malignant melanoma
     Route: 048
  7. BRAFTOVI [Suspect]
     Active Substance: ENCORAFENIB
     Route: 048
  8. MEKTOVI [Suspect]
     Active Substance: BINIMETINIB
     Indication: Malignant melanoma
     Route: 048
  9. MEKTOVI [Suspect]
     Active Substance: BINIMETINIB
     Route: 048
  10. DABRAFENIB MESYLATE [Suspect]
     Active Substance: DABRAFENIB MESYLATE
     Indication: Malignant melanoma
  11. TRAMETINIB [Suspect]
     Active Substance: TRAMETINIB
     Indication: Malignant melanoma

REACTIONS (11)
  - Immune-mediated hepatic disorder [Recovered/Resolved]
  - Immune-mediated enterocolitis [Recovered/Resolved]
  - Serous retinal detachment [Recovered/Resolved]
  - Uveitis [Unknown]
  - Pyrexia [Unknown]
  - Diarrhoea [Unknown]
  - Vision blurred [Recovered/Resolved]
  - Metastatic malignant melanoma [Unknown]
  - Malignant neoplasm progression [Unknown]
  - Ascites [Not Recovered/Not Resolved]
  - Abdominal distension [Not Recovered/Not Resolved]
